FAERS Safety Report 13936039 (Version 2)
Quarter: 2017Q3

REPORT INFORMATION
  Report Type: Spontaneous
  Country: NL (occurrence: NL)
  Receive Date: 20170905
  Receipt Date: 20170906
  Transmission Date: 20171127
  Serious: Yes (Hospitalization)
  Sender: FDA-Public Use
  Company Number: NL-PFIZER INC-2017374778

PATIENT
  Age: 74 Year
  Sex: Male
  Weight: 71 kg

DRUGS (6)
  1. FLUTICASONPROPIONAAT [Concomitant]
     Dosage: UNK
     Route: 045
     Dates: start: 20170721
  2. AZITHROMYCIN TEVA [Suspect]
     Active Substance: AZITHROMYCIN
     Indication: NASAL POLYPS
     Dosage: 1 DF, 1X/DAY (FINISHED TREATMENT)
     Route: 048
     Dates: start: 20170721, end: 20170725
  3. FERROFUMARAAT [Concomitant]
     Dosage: 200 MG, UNK
     Route: 048
  4. PREDNISOLON /00016201/ [Concomitant]
     Active Substance: PREDNISOLONE
     Dosage: 20 MG, UNK
     Route: 048
     Dates: start: 20170721
  5. DIPHANTOINE-Z 25 TABLET 23MG [Interacting]
     Active Substance: PHENYTOIN SODIUM
     Indication: EPILEPSY
     Dosage: UNK
     Route: 048
  6. LOSARTAN AND HYDROCHLOROTHIAZIDE [Concomitant]
     Active Substance: HYDROCHLOROTHIAZIDE\LOSARTAN POTASSIUM
     Dosage: 50/12.5 MG
     Route: 048

REACTIONS (3)
  - Epilepsy [Recovered/Resolved]
  - Anticonvulsant drug level decreased [None]
  - Drug interaction [Recovered/Resolved]

NARRATIVE: CASE EVENT DATE: 20170724
